FAERS Safety Report 24567781 (Version 5)
Quarter: 2025Q2

REPORT INFORMATION
  Report Type: Spontaneous
  Country: US (occurrence: US)
  Receive Date: 20241031
  Receipt Date: 20250417
  Transmission Date: 20250717
  Serious: Yes (Other)
  Sender: BRISTOL MYERS SQUIBB
  Company Number: US-BRISTOL-MYERS SQUIBB COMPANY-2024-170425

PATIENT
  Age: 41 Year
  Sex: Male

DRUGS (3)
  1. POMALYST [Suspect]
     Active Substance: POMALIDOMIDE
     Indication: Plasma cell myeloma
     Dosage: TAKE 1 CAPSULE BY MOUTH 1 TIME A DAY FOR 14 DAYS ON THEN 14 DAYS OFF
     Route: 048
     Dates: start: 202404
  2. POMALYST [Suspect]
     Active Substance: POMALIDOMIDE
     Indication: Plasma cell myeloma in remission
     Dates: start: 202406
  3. POMALYST [Suspect]
     Active Substance: POMALIDOMIDE
     Dosage: TAKE 1 CAPSULE BY MOUTH 1 TIME A DAY FOR 14 DAYS ON THEN 14 DAYS OFF
     Route: 048
     Dates: start: 202404

REACTIONS (17)
  - Nausea [Unknown]
  - Fatigue [Unknown]
  - Speech disorder [Unknown]
  - Disturbance in attention [Unknown]
  - Decreased interest [Unknown]
  - Migraine [Unknown]
  - Off label use [Unknown]
  - Neuropathy peripheral [Unknown]
  - Cognitive disorder [Unknown]
  - Back pain [Unknown]
  - Amnesia [Unknown]
  - Swelling [Unknown]
  - Joint swelling [Unknown]
  - Memory impairment [Unknown]
  - Headache [Unknown]
  - Depression [Unknown]
  - Arthralgia [Unknown]
